FAERS Safety Report 14952340 (Version 1)
Quarter: 2018Q2

REPORT INFORMATION
  Report Type: Spontaneous
  Country: US (occurrence: US)
  Receive Date: 20180530
  Receipt Date: 20180530
  Transmission Date: 20180711
  Serious: No
  Sender: FDA-Public Use
  Company Number: US-PFIZER INC-2018214569

PATIENT
  Age: 70 Year
  Sex: Male

DRUGS (2)
  1. GABAPENTIN. [Suspect]
     Active Substance: GABAPENTIN
     Dosage: UNK UNK, 2X/DAY
  2. TYLENOL [Suspect]
     Active Substance: ACETAMINOPHEN
     Dosage: 1300 MG, 4X/DAY (2 TYLENOL 650MG TIME RELEASE EVERY 6 HRS)

REACTIONS (1)
  - Drug ineffective [Unknown]
